FAERS Safety Report 17670948 (Version 2)
Quarter: 2020Q2

REPORT INFORMATION
  Report Type: Report from Study
  Country: DK (occurrence: DK)
  Receive Date: 20200415
  Receipt Date: 20200416
  Transmission Date: 20200713
  Serious: Yes (Death)
  Sender: FDA-Public Use
  Company Number: DK-PFIZER INC-2020148928

PATIENT

DRUGS (5)
  1. CISPLATIN. [Suspect]
     Active Substance: CISPLATIN
     Indication: SQUAMOUS CELL CARCINOMA OF HEAD AND NECK
     Dosage: 75 MG/M2, CYCLIC (GIVEN AT THREE-WEEK INTERVALS, HALF-HOUR INFUSION)
  2. MANNITOL. [Concomitant]
     Active Substance: MANNITOL
     Dosage: 500 ML, UNK
  3. DOCETAXEL. [Suspect]
     Active Substance: DOCETAXEL
     Indication: SQUAMOUS CELL CARCINOMA OF HEAD AND NECK
     Dosage: 75 MG/M2, CYCLIC (GIVEN AT THREE-WEEK INTERVALS, A ONE-HOUR INFUSION)
  4. PREDNISOLONE. [Concomitant]
     Active Substance: PREDNISOLONE
     Dosage: 50 MG (12 HOURS AND 1 HOUR BEFORE DOCETAXEL)
     Route: 048
  5. PREDNISOLONE. [Concomitant]
     Active Substance: PREDNISOLONE
     Dosage: 50 MG, 2X/DAY (FOR 4 DAYS FOLLOWING DOCETAXEL INFUSION)

REACTIONS (2)
  - Neutropenia [Fatal]
  - Infection [Fatal]
